FAERS Safety Report 19097842 (Version 1)
Quarter: 2021Q2

REPORT INFORMATION
  Report Type: Spontaneous
  Country: AT (occurrence: AT)
  Receive Date: 20210406
  Receipt Date: 20210406
  Transmission Date: 20210717
  Serious: Yes (Life-Threatening, Hospitalization, Disabling, Other)
  Sender: FDA-Public Use
  Company Number: AT-ASTRAZENECA-2021A244940

PATIENT
  Age: 83 Year
  Sex: Female
  Weight: 163 kg

DRUGS (3)
  1. IBRANCE [Suspect]
     Active Substance: PALBOCICLIB
     Indication: BREAST CANCER METASTATIC
     Dosage: 100 MG, CYCLIC (SCHEME 21 DAYS)
     Route: 048
     Dates: start: 201701
  2. FULVESTRANT. [Suspect]
     Active Substance: FULVESTRANT
     Indication: BREAST CANCER
     Dosage: UNK, MONTHLY (EVERY 4 WEEKS)
     Route: 058
     Dates: start: 201701
  3. XGEVA [Concomitant]
     Active Substance: DENOSUMAB
     Indication: METASTASES TO BONE
     Dosage: UNK, MONTHLY (EVERY 4 WEEKS)
     Dates: start: 201701

REACTIONS (4)
  - Renal failure [Not Recovered/Not Resolved]
  - Urosepsis [Recovered/Resolved]
  - Kidney infection [Unknown]
  - Febrile neutropenia [Recovered/Resolved]

NARRATIVE: CASE EVENT DATE: 202001
